FAERS Safety Report 7142073-1 (Version None)
Quarter: 2010Q4

REPORT INFORMATION
  Report Type: 
  Country: None (occurrence: None)
  Receive Date: 20101207
  Receipt Date: 20040715
  Transmission Date: 20110411
  Serious: Yes (Death)
  Sender: FDA-Public Use
  Company Number: B0687784A

PATIENT
  Age: 80 Year
  Sex: Female

DRUGS (1)
  1. DILATREND [Suspect]
     Indication: CARDIAC FAILURE CONGESTIVE
     Route: 065

REACTIONS (1)
  - DEATH [None]
